FAERS Safety Report 7163412-1 (Version None)
Quarter: 2010Q4

REPORT INFORMATION
  Report Type: 
  Country: None (occurrence: None)
  Receive Date: 20101215
  Receipt Date: 20100414
  Transmission Date: 20110411
  Serious: Yes (Other)
  Sender: FDA-Public Use
  Company Number: GB-PFIZER INC-2010046917

PATIENT
  Age: 39 Year
  Sex: Female

DRUGS (2)
  1. LYRICA [Suspect]
     Indication: MIGRAINE
     Dosage: 300 MG, 3X/DAY
  2. GABAPENTIN [Suspect]
     Indication: MIGRAINE
     Dosage: UNK

REACTIONS (6)
  - DRUG DISPENSING ERROR [None]
  - HYPOAESTHESIA [None]
  - MALAISE [None]
  - NAUSEA [None]
  - PARAESTHESIA [None]
  - SWOLLEN TONGUE [None]
